FAERS Safety Report 5234952-7 (Version None)
Quarter: 2007Q1

REPORT INFORMATION
  Report Type: 
  Country: None (occurrence: None)
  Receive Date: 20070210
  Receipt Date: 20070201
  Transmission Date: 20070707
  Serious: Yes (Hospitalization, Other)
  Sender: FDA-Public Use
  Company Number: NL-ABBOTT-07P-114-0358180-00

PATIENT
  Sex: Male

DRUGS (1)
  1. DEPAKENE [Suspect]
     Indication: EPILEPSY
     Route: 048
     Dates: start: 20060101

REACTIONS (16)
  - ARTHRALGIA [None]
  - ASCITES [None]
  - COLONIC POLYP [None]
  - ERYTHEMA [None]
  - HYPERSENSITIVITY [None]
  - HYPOTHYROIDISM [None]
  - MYALGIA [None]
  - NEPHRITIS INTERSTITIAL [None]
  - NORMOCHROMIC NORMOCYTIC ANAEMIA [None]
  - OEDEMA [None]
  - PLEURAL EFFUSION [None]
  - PSEUDOLYMPHOMA [None]
  - PYREXIA [None]
  - RASH [None]
  - RENAL IMPAIRMENT [None]
  - SKIN EXFOLIATION [None]
